FAERS Safety Report 11717215 (Version 17)
Quarter: 2016Q4

REPORT INFORMATION
  Report Type: Spontaneous
  Country: US (occurrence: US)
  Receive Date: 20151109
  Receipt Date: 20161228
  Transmission Date: 20170206
  Serious: Yes (Death, Hospitalization, Other)
  Sender: FDA-Public Use
  Company Number: US-ACTELION-A-US2015-126704

PATIENT
  Age: 58 Year
  Sex: Female

DRUGS (7)
  1. VELETRI [Suspect]
     Active Substance: EPOPROSTENOL
     Indication: PULMONARY ARTERIAL HYPERTENSION
     Dosage: 22 NG/KG, PER MIN
     Route: 042
     Dates: start: 20150710
  2. PREDNISONE. [Suspect]
     Active Substance: PREDNISONE
     Indication: WHEEZING
     Route: 065
  3. VELETRI [Suspect]
     Active Substance: EPOPROSTENOL
     Dosage: 35.5 NG/KG, PER MIN
     Route: 042
     Dates: end: 20161219
  4. VELETRI [Suspect]
     Active Substance: EPOPROSTENOL
     Dosage: 27 NG/KG, PER MIN
     Route: 042
  5. OPSUMIT [Suspect]
     Active Substance: MACITENTAN
     Dosage: 10 MG, QD
     Route: 048
     Dates: end: 20161219
  6. ADEMPAS [Concomitant]
     Active Substance: RIOCIGUAT
  7. OPSUMIT [Suspect]
     Active Substance: MACITENTAN
     Indication: PULMONARY ARTERIAL HYPERTENSION
     Dosage: 10 MG, QD
     Route: 048
     Dates: start: 20150317

REACTIONS (52)
  - Death [Fatal]
  - Urine output decreased [Recovered/Resolved]
  - Nausea [Not Recovered/Not Resolved]
  - Septic shock [Recovered/Resolved]
  - Abdominal pain [Not Recovered/Not Resolved]
  - Fluid retention [Unknown]
  - Feeling cold [Unknown]
  - Depression [Not Recovered/Not Resolved]
  - Arthralgia [Not Recovered/Not Resolved]
  - Chest injury [Unknown]
  - Weight increased [Unknown]
  - Coeliac artery compression syndrome [Not Recovered/Not Resolved]
  - Weight decreased [Not Recovered/Not Resolved]
  - Upper respiratory tract infection [Unknown]
  - Acute respiratory failure [Recovered/Resolved]
  - Epistaxis [Recovered/Resolved]
  - Abdominal pain upper [Unknown]
  - Malaise [Unknown]
  - Oedema peripheral [Recovered/Resolved]
  - Head injury [Unknown]
  - Atrial fibrillation [Recovered/Resolved]
  - Chronic obstructive pulmonary disease [Recovered/Resolved]
  - Fatigue [Unknown]
  - Activities of daily living impaired [Unknown]
  - Gastrointestinal disorder [Recovered/Resolved]
  - Asthenia [Unknown]
  - Pneumonia [Recovered/Resolved]
  - Haemorrhage [Unknown]
  - Sputum discoloured [Recovered/Resolved]
  - Fall [Unknown]
  - Feeling abnormal [Unknown]
  - Wheezing [Recovered/Resolved]
  - Rash [Not Recovered/Not Resolved]
  - Musculoskeletal chest pain [Unknown]
  - Stress fracture [Unknown]
  - Transfusion [Unknown]
  - Dyspnoea [Recovered/Resolved]
  - Sodium retention [Recovered/Resolved]
  - Crying [Unknown]
  - Skin abrasion [Recovered/Resolved]
  - Headache [Unknown]
  - Chest discomfort [Unknown]
  - Limb injury [Unknown]
  - Facial pain [Unknown]
  - Vomiting [Not Recovered/Not Resolved]
  - Gastrointestinal haemorrhage [Recovered/Resolved]
  - Supraventricular tachycardia [Recovered/Resolved]
  - Cough [Recovered/Resolved]
  - Intervertebral disc degeneration [Not Recovered/Not Resolved]
  - Anaemia [Unknown]
  - Mood altered [Unknown]
  - Neck pain [Not Recovered/Not Resolved]

NARRATIVE: CASE EVENT DATE: 20150812
